FAERS Safety Report 5419309-8 (Version None)
Quarter: 2007Q3

REPORT INFORMATION
  Report Type: 
  Country: None (occurrence: None)
  Receive Date: 20070820
  Receipt Date: 20070809
  Transmission Date: 20080115
  Serious: Yes (Hospitalization)
  Sender: FDA-Public Use
  Company Number: US-JNJFOC-20070802590

PATIENT
  Sex: Male

DRUGS (2)
  1. RISPERDAL CONSTA [Suspect]
     Indication: SCHIZOPHRENIA
     Route: 042
  2. ATENOLOL [Concomitant]
     Indication: EXTRAPYRAMIDAL DISORDER

REACTIONS (3)
  - ALCOHOL POISONING [None]
  - DRUG INEFFECTIVE [None]
  - PSYCHOTIC DISORDER [None]
